FAERS Safety Report 11990832 (Version 2)
Quarter: 2016Q2

REPORT INFORMATION
  Report Type: Spontaneous
  Country: US (occurrence: US)
  Receive Date: 20160202
  Receipt Date: 20160527
  Transmission Date: 20160815
  Serious: Yes (Life-Threatening, Hospitalization, Other)
  Sender: FDA-Public Use
  Company Number: US-009507513-1602USA001337

PATIENT
  Sex: Male
  Weight: 56.69 kg

DRUGS (3)
  1. KOMBIGLYZE XR [Suspect]
     Active Substance: METFORMIN HYDROCHLORIDE\SAXAGLIPTIN HYDROCHLORIDE
     Indication: TYPE 2 DIABETES MELLITUS
     Dosage: 2.5 MG, QD
     Dates: start: 20120313, end: 20130125
  2. ONGLYZA [Suspect]
     Active Substance: SAXAGLIPTIN HYDROCHLORIDE
     Indication: TYPE 2 DIABETES MELLITUS
     Dosage: 5 MG, QD
     Dates: start: 20110617, end: 20120313
  3. JANUVIA [Suspect]
     Active Substance: SITAGLIPTIN PHOSPHATE
     Indication: TYPE 2 DIABETES MELLITUS
     Dosage: 100 MG, QD
     Route: 048
     Dates: start: 20090812, end: 20100802

REACTIONS (31)
  - Synovial cyst [Unknown]
  - Osteoarthritis [Unknown]
  - Pain in extremity [Unknown]
  - Metastases to liver [Unknown]
  - Splenic vein occlusion [Unknown]
  - Hypercholesterolaemia [Unknown]
  - Depression [Unknown]
  - Type V hyperlipidaemia [Unknown]
  - Metastases to lung [Unknown]
  - Diabetes mellitus inadequate control [Unknown]
  - Diverticulum intestinal [Unknown]
  - Adjustment disorder with depressed mood [Unknown]
  - Transient ischaemic attack [Unknown]
  - Neuropathy peripheral [Unknown]
  - Pulmonary mass [Unknown]
  - Metastases to abdominal wall [Unknown]
  - Non-alcoholic steatohepatitis [Unknown]
  - Renal cyst [Unknown]
  - Prostatomegaly [Unknown]
  - Arteriosclerosis coronary artery [Unknown]
  - Atelectasis [Unknown]
  - Malaise [Unknown]
  - Liver function test abnormal [Unknown]
  - Urine abnormality [Unknown]
  - Fatigue [Unknown]
  - Pancreatic carcinoma metastatic [Unknown]
  - Aortic arteriosclerosis [Unknown]
  - Gastric varices [Unknown]
  - Portal hypertension [Unknown]
  - Diabetic neuropathy [Unknown]
  - Erectile dysfunction [Unknown]

NARRATIVE: CASE EVENT DATE: 20100113
